FAERS Safety Report 12391149 (Version 1)
Quarter: 2016Q2

REPORT INFORMATION
  Report Type: Spontaneous
  Country: US (occurrence: US)
  Receive Date: 20160520
  Receipt Date: 20160520
  Transmission Date: 20160815
  Serious: Yes (Hospitalization)
  Sender: FDA-Public Use
  Company Number: US-PFIZER INC-2016262392

PATIENT
  Age: 59 Year
  Sex: Female
  Weight: 107.95 kg

DRUGS (3)
  1. CELEBREX [Suspect]
     Active Substance: CELECOXIB
     Indication: ARTHRITIS
     Dosage: 200 MG, 2X/DAY
     Route: 048
  2. CELECOXIB. [Suspect]
     Active Substance: CELECOXIB
     Indication: ARTHRITIS
     Dosage: 200 MG, 2X/DAY
     Route: 048
     Dates: start: 20160224, end: 20160226
  3. TYLENOL [Concomitant]
     Active Substance: ACETAMINOPHEN
     Indication: SINUS HEADACHE
     Dosage: HAD TAKEN 5, 500MG TABLETS OVER A FEW DAYS.
     Dates: start: 20160225

REACTIONS (7)
  - Hepatitis [Not Recovered/Not Resolved]
  - Sinusitis [Unknown]
  - Sinus headache [Unknown]
  - Jaundice [Unknown]
  - Pain [Recovering/Resolving]
  - Activities of daily living impaired [Recovered/Resolved]
  - Fatigue [Unknown]

NARRATIVE: CASE EVENT DATE: 20160226
